FAERS Safety Report 8406378-6 (Version None)
Quarter: 2012Q2

REPORT INFORMATION
  Report Type: 
  Country: None (occurrence: None)
  Receive Date: 20120604
  Receipt Date: 20120531
  Transmission Date: 20120825
  Serious: Yes (Other)
  Sender: FDA-Public Use
  Company Number: PHEH2009US13748

PATIENT
  Sex: Female

DRUGS (27)
  1. MULTI-VITAMINS [Concomitant]
  2. AROMASIN [Concomitant]
     Dosage: 25 MG, QD
  3. PRILOSEC [Concomitant]
     Dosage: 20 MG, BID
  4. MELATONIN [Concomitant]
  5. TRAZODONE HCL [Concomitant]
     Dosage: 150 MG, QHS
     Route: 048
  6. ALBUTEROL [Concomitant]
     Dosage: 90 UG,
  7. TAMOXIFEN CITRATE [Concomitant]
  8. AVELOX [Concomitant]
  9. AMBIEN [Concomitant]
     Dosage: 10 MG, QHS
     Route: 048
  10. CYMBALTA [Concomitant]
     Dosage: 30 MG, BID
  11. TOPROL-XL [Concomitant]
     Dosage: 50 MG, QD
  12. ZOMETA [Suspect]
     Dosage: 4 MG, UNK
     Route: 042
     Dates: start: 20040305, end: 20070601
  13. FEMARA [Concomitant]
  14. WELLBUTRIN [Concomitant]
     Dosage: 150 MG,
  15. ABRAXANE [Concomitant]
  16. LEXAPRO [Concomitant]
     Dosage: 20 MG, QD
     Route: 048
  17. VICODIN [Concomitant]
  18. CHEMOTHERAPEUTICS [Concomitant]
  19. ADVAIR DISKUS 100/50 [Concomitant]
  20. SEROQUEL [Concomitant]
     Dosage: 25 MG, UNK
  21. TAXOL [Concomitant]
  22. FASLODEX [Concomitant]
  23. ARIMIDEX [Concomitant]
  24. RADIATION THERAPY [Concomitant]
  25. CLARITIN [Concomitant]
     Dosage: 10 MG, UNK
  26. EFFEXOR [Concomitant]
     Dosage: 75 MG, QD
     Route: 048
  27. LIPITOR [Concomitant]

REACTIONS (60)
  - SPINAL OSTEOARTHRITIS [None]
  - HIATUS HERNIA [None]
  - VOCAL CORD PARALYSIS [None]
  - CORONARY ARTERY DISEASE [None]
  - CYST [None]
  - OSTEONECROSIS OF JAW [None]
  - GASTROOESOPHAGEAL REFLUX DISEASE [None]
  - CHOLECYSTITIS [None]
  - METASTASES TO BONE [None]
  - METASTASES TO LIVER [None]
  - SUICIDAL IDEATION [None]
  - CHRONIC SINUSITIS [None]
  - CHEST PAIN [None]
  - NASAL DISCOMFORT [None]
  - EXPOSED BONE IN JAW [None]
  - DYSPHORIA [None]
  - HEADACHE [None]
  - HEPATIC CYST [None]
  - JAW FRACTURE [None]
  - OSTEOMYELITIS [None]
  - ASTHMA [None]
  - FACE INJURY [None]
  - DYSTHYMIC DISORDER [None]
  - OSTEOARTHRITIS [None]
  - BACK PAIN [None]
  - ANXIETY [None]
  - GASTRITIS [None]
  - NEUROPATHY PERIPHERAL [None]
  - RENAL CYST [None]
  - OSTEITIS DEFORMANS [None]
  - BLOOD CHOLESTEROL INCREASED [None]
  - ALOPECIA [None]
  - HYPERLIPIDAEMIA [None]
  - HAEMATOCHEZIA [None]
  - ANHEDONIA [None]
  - GENERAL PHYSICAL HEALTH DETERIORATION [None]
  - DEPRESSION [None]
  - NEOPLASM MALIGNANT [None]
  - METASTASES TO LYMPH NODES [None]
  - CHRONIC OBSTRUCTIVE PULMONARY DISEASE [None]
  - LYMPHADENOPATHY MEDIASTINAL [None]
  - LYMPHOEDEMA [None]
  - CATARACT [None]
  - INJURY [None]
  - BONE LOSS [None]
  - PAIN [None]
  - OSTEOPENIA [None]
  - LUNG NEOPLASM [None]
  - ABDOMINAL PAIN [None]
  - PALATAL DISORDER [None]
  - ORBITAL OEDEMA [None]
  - ORAL CAVITY FISTULA [None]
  - DYSPNOEA [None]
  - HYPERTENSION [None]
  - NEOPLASM PROGRESSION [None]
  - SPONDYLOLISTHESIS [None]
  - HEPATIC STEATOSIS [None]
  - DIZZINESS [None]
  - LARYNGITIS [None]
  - HOT FLUSH [None]
